APPROVED DRUG PRODUCT: ZORYVE
Active Ingredient: ROFLUMILAST
Strength: 0.05%
Dosage Form/Route: CREAM;TOPICAL
Application: N215985 | Product #003
Applicant: ARCUTIS BIOTHERAPEUTICS INC
Approved: Oct 4, 2025 | RLD: Yes | RS: Yes | Type: RX

PATENTS:
Patent 12310956 | Expires: Jun 7, 2037
Patent 11992480 | Expires: Jun 7, 2037
Patent 11819496 | Expires: Jun 7, 2037
Patent 12005051 | Expires: Jun 7, 2037
Patent 11129818 | Expires: Aug 25, 2037
Patent 9907788 | Expires: Jun 7, 2037
Patent 12257242 | Expires: Jun 7, 2037
Patent 12011437 | Expires: Jun 7, 2037
Patent 12005052 | Expires: Jun 7, 2037
Patent 12042487 | Expires: Jun 7, 2037
Patent 9884050 | Expires: Jun 7, 2037
Patent 10940142 | Expires: Jun 7, 2037
Patent 12220409 | Expires: Jun 7, 2037
Patent 11793796 | Expires: Jun 7, 2037
Patent 12336983 | Expires: Jun 7, 2037
Patent 12016848 | Expires: Jun 7, 2037

EXCLUSIVITY:
Code: NS | Date: Oct 4, 2028